FAERS Safety Report 15155065 (Version 2)
Quarter: 2018Q3

REPORT INFORMATION
  Report Type: Spontaneous
  Country: GB (occurrence: GB)
  Receive Date: 20180717
  Receipt Date: 20180829
  Transmission Date: 20181010
  Serious: Yes (Other)
  Sender: FDA-Public Use
  Company Number: GB-SA-2018SA190122

PATIENT
  Sex: Female

DRUGS (1)
  1. DUPIXENT [Suspect]
     Active Substance: DUPILUMAB

REACTIONS (9)
  - Fatigue [Unknown]
  - Cellulitis [Unknown]
  - Dysgeusia [Unknown]
  - Pruritus [Unknown]
  - Eye infection [Not Recovered/Not Resolved]
  - Swelling face [Unknown]
  - Malaise [Unknown]
  - Erythema [Unknown]
  - Swelling [Unknown]
